FAERS Safety Report 9061692 (Version 1)
Quarter: 2013Q1

REPORT INFORMATION
  Report Type: Spontaneous
  Country: US (occurrence: None)
  Receive Date: 20130122
  Receipt Date: 20130122
  Transmission Date: 20140127
  Serious: Yes (Death)
  Sender: FDA-Public Use
  Company Number: AUR-APL-2013-00396

PATIENT
  Age: 31 Year
  Sex: Female

DRUGS (4)
  1. CARVEDILOL (CARVEDILOL) [Suspect]
     Indication: PRODUCT USED FOR UNKNOWN INDICATION
     Dosage: ORAL
     Route: 048
  2. AMLODIPINE (AMLODIPINE) [Suspect]
     Dosage: UNKNOWN
  3. TORSEMIDE [Suspect]
     Dosage: UNKNOWN
  4. DILTIAZEM [Suspect]
     Dosage: UNKNOWN

REACTIONS (2)
  - Toxicity to various agents [None]
  - Completed suicide [None]
